FAERS Safety Report 10022021 (Version 1)
Quarter: 2014Q1

REPORT INFORMATION
  Report Type: Spontaneous
  Country: AU (occurrence: AU)
  Receive Date: 20140319
  Receipt Date: 20140319
  Transmission Date: 20141002
  Serious: Yes (Other)
  Sender: FDA-Public Use
  Company Number: AU-ABBVIE-14P-008-1211479-00

PATIENT
  Sex: Male

DRUGS (1)
  1. LUCRIN DEPOT [Suspect]
     Indication: PRODUCT USED FOR UNKNOWN INDICATION

REACTIONS (6)
  - Blindness [Unknown]
  - Glaucoma [Unknown]
  - Visual acuity reduced [Unknown]
  - Mental disorder [Recovering/Resolving]
  - Feeling of despair [Recovering/Resolving]
  - Feelings of worthlessness [Recovering/Resolving]
